FAERS Safety Report 7145052-3 (Version None)
Quarter: 2010Q4

REPORT INFORMATION
  Report Type: 
  Country: None (occurrence: None)
  Receive Date: 20101208
  Receipt Date: 20101125
  Transmission Date: 20110411
  Serious: Yes (Other)
  Sender: FDA-Public Use
  Company Number: PHHY2010FR80353

PATIENT
  Age: 57 Year
  Sex: Female

DRUGS (1)
  1. ZOMETA [Suspect]
     Indication: BREAST CANCER
     Dosage: 4 MG/5 ML, 1 DF MONTHLY
     Dates: start: 20041201

REACTIONS (4)
  - DEBRIDEMENT [None]
  - OSTEITIS [None]
  - OSTEONECROSIS OF JAW [None]
  - TOOTH EXTRACTION [None]
